FAERS Safety Report 18276199 (Version 1)
Quarter: 2020Q3

REPORT INFORMATION
  Report Type: Spontaneous
  Country: US (occurrence: US)
  Receive Date: 20200917
  Receipt Date: 20200917
  Transmission Date: 20201103
  Serious: No
  Sender: FDA-Public Use
  Company Number: US-BION-008735

PATIENT
  Age: 51 Year
  Sex: Male
  Weight: 99.79 kg

DRUGS (1)
  1. ZYRTEC [Suspect]
     Active Substance: CETIRIZINE HYDROCHLORIDE
     Indication: HYPERSENSITIVITY
     Dosage: QTY: 1, ONCE A DAY
     Route: 048
     Dates: start: 20200514, end: 20200514

REACTIONS (4)
  - Hyperhidrosis [Recovered/Resolved]
  - Pruritus [Recovering/Resolving]
  - Urticaria [Recovered/Resolved]
  - Hot flush [Recovered/Resolved]

NARRATIVE: CASE EVENT DATE: 20200514
